FAERS Safety Report 13266412 (Version 1)
Quarter: 2017Q1

REPORT INFORMATION
  Report Type: Not Available
  Country: ES (occurrence: ES)
  Receive Date: 20170223
  Receipt Date: 20170223
  Transmission Date: 20170428
  Serious: Yes (Other)
  Sender: FDA-Public Use
  Company Number: ES-PURDUE PHARMA-GBR-2017-0043635

PATIENT
  Age: 88 Year
  Sex: Female

DRUGS (1)
  1. TARGIN [Suspect]
     Active Substance: NALOXONE HYDROCHLORIDE\OXYCODONE HYDROCHLORIDE
     Indication: SELF-MEDICATION
     Dosage: ONLY STRENGTH PROVIDED 10 MG/5 MG
     Route: 048
     Dates: start: 201701, end: 201701

REACTIONS (4)
  - Wrong drug administered [Recovered/Resolved]
  - Anxiety [Recovered/Resolved]
  - Drug withdrawal syndrome [Recovered/Resolved]
  - Nervousness [Recovered/Resolved]

NARRATIVE: CASE EVENT DATE: 201701
